FAERS Safety Report 24728240 (Version 2)
Quarter: 2025Q1

REPORT INFORMATION
  Report Type: Spontaneous
  Country: FR (occurrence: FR)
  Receive Date: 20241212
  Receipt Date: 20250318
  Transmission Date: 20250409
  Serious: Yes (Hospitalization)
  Sender: JOHNSON AND JOHNSON
  Company Number: None

PATIENT
  Age: 67 Year
  Sex: Female
  Weight: 53 kg

DRUGS (17)
  1. RYBREVANT [Suspect]
     Active Substance: AMIVANTAMAB-VMJW
     Indication: Lung adenocarcinoma
     Route: 042
     Dates: start: 20241014, end: 20241015
  2. RYBREVANT [Suspect]
     Active Substance: AMIVANTAMAB-VMJW
     Route: 042
     Dates: start: 20241015
  3. CARBOPLATIN [Suspect]
     Active Substance: CARBOPLATIN
     Indication: Lung adenocarcinoma
     Route: 042
     Dates: start: 20241014, end: 20241014
  4. PEMETREXED [Suspect]
     Active Substance: PEMETREXED
     Indication: Lung adenocarcinoma
     Route: 042
     Dates: start: 20241014, end: 20241014
  5. LEVOTHYROXINE [Concomitant]
     Active Substance: LEVOTHYROXINE
  6. XARELTO [Concomitant]
     Active Substance: RIVAROXABAN
  7. PREDNISONE [Concomitant]
     Active Substance: PREDNISONE
  8. BACTRIM [Concomitant]
     Active Substance: SULFAMETHOXAZOLE\TRIMETHOPRIM
  9. DOXYCYCLINE [Concomitant]
     Active Substance: DOXYCYCLINE
  10. FOLIC ACID [Concomitant]
     Active Substance: FOLIC ACID
  11. VITAMIN B12 [Concomitant]
     Active Substance: CYANOCOBALAMIN
  12. FENTANYL [Concomitant]
     Active Substance: FENTANYL
  13. DUPHALAC [Concomitant]
     Active Substance: LACTULOSE
  14. OSIMERTINIB [Concomitant]
     Active Substance: OSIMERTINIB
  15. POLARAMINE [Concomitant]
     Active Substance: DEXCHLORPHENIRAMINE MALEATE
  16. NEULASTA [Concomitant]
     Active Substance: PEGFILGRASTIM
  17. CORTICOSTEROID NOS [Concomitant]
     Active Substance: CORTICOSTEROID NOS

REACTIONS (2)
  - Agranulocytosis [Recovered/Resolved]
  - Thrombocytopenia [Recovering/Resolving]

NARRATIVE: CASE EVENT DATE: 20241022
